FAERS Safety Report 25453997 (Version 2)
Quarter: 2025Q4

REPORT INFORMATION
  Report Type: Spontaneous
  Country: EU (occurrence: EU)
  Receive Date: 20250619
  Receipt Date: 20251222
  Transmission Date: 20260117
  Serious: Yes (Hospitalization, Other)
  Sender: Kenvue
  Company Number: EU-SANDOZ-SDZ2025DE039783

PATIENT

DRUGS (10)
  1. IBUPROFEN [Suspect]
     Active Substance: IBUPROFEN
     Indication: Product used for unknown indication
     Dosage: 1200 MG
     Route: 065
  2. IBUPROFEN [Suspect]
     Active Substance: IBUPROFEN
     Dosage: 1800 MG
     Route: 065
  3. IBUPROFEN [Suspect]
     Active Substance: IBUPROFEN
     Dosage: 600 MG
     Route: 065
  4. IBUPROFEN [Suspect]
     Active Substance: IBUPROFEN
     Dosage: 1200 MG
     Route: 065
  5. ACEMETACIN [Suspect]
     Active Substance: ACEMETACIN
     Indication: Product used for unknown indication
     Dosage: 60 MG
     Route: 065
  6. ACEMETACIN [Suspect]
     Active Substance: ACEMETACIN
     Dosage: 120 MG
     Route: 065
  7. ACEMETACIN [Suspect]
     Active Substance: ACEMETACIN
     Dosage: 60 MG
     Route: 065
  8. COSENTYX [Suspect]
     Active Substance: SECUKINUMAB
     Indication: Psoriatic arthropathy
     Dosage: 150 MG
     Route: 065
  9. COSENTYX [Suspect]
     Active Substance: SECUKINUMAB
     Dosage: 300 MG
     Route: 065
  10. COSENTYX [Suspect]
     Active Substance: SECUKINUMAB
     Dosage: 300 MG
     Route: 065

REACTIONS (7)
  - Suicidal ideation [Unknown]
  - Alcohol poisoning [Unknown]
  - Depression [Unknown]
  - Depression [Unknown]
  - Depression [Unknown]
  - Alcoholism [Unknown]
  - Depression [Unknown]
